FAERS Safety Report 17075748 (Version 3)
Quarter: 2019Q4

REPORT INFORMATION
  Report Type: Spontaneous
  Country: US (occurrence: US)
  Receive Date: 20191126
  Receipt Date: 20191224
  Transmission Date: 20200122
  Serious: No
  Sender: FDA-Public Use
  Company Number: US-TRIS PHARMA, INC.-19US008628

PATIENT

DRUGS (1)
  1. PROMETHAZINE HCL + CODEINE PHOSPHATE [Suspect]
     Active Substance: CODEINE PHOSPHATE\PROMETHAZINE HYDROCHLORIDE
     Indication: COUGH
     Dosage: 2 TSP, EVERY 6 HOURS AS NEEDED AT NIGHT
     Route: 048
     Dates: start: 201911

REACTIONS (2)
  - Rash [Recovered/Resolved]
  - Reaction to colouring [Unknown]

NARRATIVE: CASE EVENT DATE: 201911
